FAERS Safety Report 8338466-7 (Version None)
Quarter: 2012Q2

REPORT INFORMATION
  Report Type: 
  Country: None (occurrence: None)
  Receive Date: 20120504
  Receipt Date: 20120420
  Transmission Date: 20120825
  Serious: Yes (Death)
  Sender: FDA-Public Use
  Company Number: JP-PFIZER INC-2012083796

PATIENT
  Age: 61 Year
  Sex: Male

DRUGS (8)
  1. MUCOSTA [Suspect]
     Dosage: UNK
     Route: 048
  2. ITAVASTATIN [Suspect]
  3. MIGLITOL [Suspect]
     Dosage: UNK
     Route: 048
     Dates: start: 20100801, end: 20101101
  4. ASPIRIN [Suspect]
     Dosage: UNK
     Route: 048
  5. JANUVIA [Suspect]
     Dosage: UNK
     Route: 048
  6. AMARYL [Suspect]
     Dosage: UNK
     Route: 048
  7. PLAVIX [Suspect]
     Dosage: UNK
     Route: 048
  8. LIVALO [Suspect]
     Dosage: UNK
     Route: 048

REACTIONS (1)
  - LIVER DISORDER [None]
